FAERS Safety Report 8162522-X (Version None)
Quarter: 2012Q1

REPORT INFORMATION
  Report Type: 
  Country: None (occurrence: None)
  Receive Date: 20120224
  Receipt Date: 20110926
  Transmission Date: 20120608
  Serious: Yes (Hospitalization)
  Sender: FDA-Public Use
  Company Number: US-PFIZER INC-K201101168

PATIENT
  Sex: Male

DRUGS (2)
  1. ALTACE [Suspect]
     Indication: BLOOD PRESSURE INCREASED
     Dosage: 10 MG, 3X/DAY
     Route: 048
     Dates: start: 20110922, end: 20110101
  2. IMDUR [Concomitant]
     Dosage: 10 MG, 3X/DAY
     Route: 048
     Dates: start: 20110915

REACTIONS (4)
  - DYSPNOEA [None]
  - LIP SWELLING [None]
  - HYPERSENSITIVITY [None]
  - SWELLING FACE [None]
